FAERS Safety Report 13866950 (Version 2)
Quarter: 2018Q3

REPORT INFORMATION
  Report Type: Report from Study
  Country: FR (occurrence: FR)
  Receive Date: 20170814
  Receipt Date: 20180820
  Transmission Date: 20181010
  Serious: Yes (Hospitalization, Other)
  Sender: FDA-Public Use
  Company Number: FR-REGENERON PHARMACEUTICALS, INC.-2015-11442

PATIENT

DRUGS (26)
  1. EYLEA [Suspect]
     Active Substance: AFLIBERCEPT
     Indication: NEOVASCULAR AGE-RELATED MACULAR DEGENERATION
     Dosage: 50 ?L, ONCE, RIGHT EYE
     Dates: start: 20140725, end: 20140725
  2. OXYBUPROCAINE [Concomitant]
     Active Substance: BENOXINATE
     Dosage: ONCE IN RIGHT EYE
     Dates: start: 20140825, end: 20140825
  3. OXYBUPROCAINE [Concomitant]
     Active Substance: BENOXINATE
     Dosage: ONCE IN RIGHT EYE
     Dates: start: 20150127, end: 20150127
  4. BACTRIM?FORTE [Concomitant]
     Active Substance: SULFAMETHOXAZOLE\TRIMETHOPRIM
     Indication: PRODUCT USED FOR UNKNOWN INDICATION
     Dosage: 2 DF, QD
     Dates: start: 20150507, end: 20150517
  5. EYLEA [Suspect]
     Active Substance: AFLIBERCEPT
     Dosage: UNK, ONCE, LEFT EYE
     Dates: start: 20141106, end: 20141106
  6. EYLEA [Suspect]
     Active Substance: AFLIBERCEPT
     Dosage: 50 ?L, ONCE, RIGHT EYE
     Route: 031
     Dates: start: 20150127, end: 20150127
  7. EYLEA [Suspect]
     Active Substance: AFLIBERCEPT
     Dosage: 50 ?L, ONCE, RIGHT EYE
     Route: 031
     Dates: start: 20150305, end: 20150305
  8. OXYBUPROCAINE [Concomitant]
     Active Substance: BENOXINATE
     Dosage: ONCE IN RIGHT EYE
     Dates: start: 20141218, end: 20141218
  9. OXYBUPROCAINE [Concomitant]
     Active Substance: BENOXINATE
     Dosage: ONCE IN RIGHT EYE
     Dates: start: 20150427, end: 20150427
  10. ROCEPHINE [Concomitant]
     Active Substance: CEFTRIAXONE SODIUM
     Indication: PRODUCT USED FOR UNKNOWN INDICATION
     Dosage: UNK
     Dates: start: 20150504, end: 20150507
  11. AMIKLIN [Concomitant]
     Active Substance: AMIKACIN SULFATE
     Indication: PRODUCT USED FOR UNKNOWN INDICATION
     Dosage: UNK
     Dates: start: 20150504, end: 20150507
  12. UVEDOSE [Concomitant]
     Active Substance: CHOLECALCIFEROL
     Indication: PRODUCT USED FOR UNKNOWN INDICATION
     Dosage: UNK
     Dates: start: 20150401, end: 20150430
  13. EYLEA [Suspect]
     Active Substance: AFLIBERCEPT
     Dosage: UNK, ONCE, LEFT EYE
     Dates: start: 20140908, end: 20140908
  14. OXYBUPROCAINE [Concomitant]
     Active Substance: BENOXINATE
     Indication: LOCAL ANAESTHESIA
     Dosage: ONCE IN RIGHT EYE
     Dates: start: 20140725, end: 20140725
  15. OXYBUPROCAINE [Concomitant]
     Active Substance: BENOXINATE
     Dosage: ONCE IN RIGHT EYE
     Dates: start: 20140922, end: 20140922
  16. PANTOPRAZOLE [Concomitant]
     Active Substance: PANTOPRAZOLE
     Indication: PRODUCT USED FOR UNKNOWN INDICATION
     Dosage: 40 MG, QD
     Dates: start: 20150401
  17. EYLEA [Suspect]
     Active Substance: AFLIBERCEPT
     Dosage: UNK, ONCE, RIGHT EYE
     Dates: start: 20140825, end: 20140825
  18. OXYBUPROCAINE [Concomitant]
     Active Substance: BENOXINATE
     Dosage: ONCE IN RIGHT EYE
     Dates: start: 20150305, end: 20150305
  19. EYLEA [Suspect]
     Active Substance: AFLIBERCEPT
     Dosage: UNK, ONCE, RIGHT EYE
     Dates: start: 20140922, end: 20140922
  20. OXYBUPROCAINE [Concomitant]
     Active Substance: BENOXINATE
     Dosage: ONCE IN LEFT EYE
     Dates: start: 20140811, end: 20140811
  21. OXYBUPROCAINE [Concomitant]
     Active Substance: BENOXINATE
     Dosage: ONCE IN LEFT EYE
     Dates: start: 20140908, end: 20140908
  22. OXYBUPROCAINE [Concomitant]
     Active Substance: BENOXINATE
     Dosage: ONCE IN LEFT EYE
     Dates: start: 20141106, end: 20141106
  23. LASILIX                            /00032601/ [Concomitant]
     Active Substance: FUROSEMIDE
     Indication: PRODUCT USED FOR UNKNOWN INDICATION
     Dosage: 40 MG, QD
     Dates: start: 20150127
  24. EYLEA [Suspect]
     Active Substance: AFLIBERCEPT
     Dosage: UNK, ONCE, LEFT EYE
     Dates: start: 20140811, end: 20140811
  25. EYLEA [Suspect]
     Active Substance: AFLIBERCEPT
     Dosage: UNK, ONCE, RIGHT EYE
     Dates: start: 20141218, end: 20141218
  26. EYLEA [Suspect]
     Active Substance: AFLIBERCEPT
     Dosage: 50 ?L, ONCE, RIGHT EYE
     Route: 031
     Dates: start: 20150427, end: 20150427

REACTIONS (4)
  - Pyelonephritis acute [Recovered/Resolved]
  - Dyspnoea [Recovered/Resolved]
  - Therapy change [Recovered/Resolved]
  - Abdominal pain [Recovered/Resolved]

NARRATIVE: CASE EVENT DATE: 20150127
